FAERS Safety Report 23683873 (Version 5)
Quarter: 2025Q2

REPORT INFORMATION
  Report Type: Spontaneous
  Country: US (occurrence: US)
  Receive Date: 20240328
  Receipt Date: 20250403
  Transmission Date: 20250717
  Serious: No
  Sender: ABBVIE
  Company Number: US-ABBVIE-5687163

PATIENT
  Age: 33 Year
  Sex: Female

DRUGS (2)
  1. LILETTA [Suspect]
     Active Substance: LEVONORGESTREL
     Indication: Product used for unknown indication
     Route: 015
     Dates: start: 20240314, end: 20240314
  2. LILETTA [Suspect]
     Active Substance: LEVONORGESTREL
     Route: 015
     Dates: start: 20240322

REACTIONS (3)
  - Embedded device [Recovered/Resolved]
  - Procedural haemorrhage [Unknown]
  - Device dislocation [Unknown]

NARRATIVE: CASE EVENT DATE: 20240314
